FAERS Safety Report 15438745 (Version 1)
Quarter: 2018Q3

REPORT INFORMATION
  Report Type: Spontaneous
  Country: US (occurrence: US)
  Receive Date: 20180924
  Receipt Date: 20180924
  Transmission Date: 20181010
  Serious: Yes (Other)
  Sender: FDA-Public Use
  Company Number: None

PATIENT
  Age: 70 Year
  Sex: Female
  Weight: 74.84 kg

DRUGS (9)
  1. TYLENOL [Concomitant]
     Active Substance: ACETAMINOPHEN
  2. BENAZEPRIL [Concomitant]
     Active Substance: BENAZEPRIL HYDROCHLORIDE
  3. THYROID MEDS [Concomitant]
  4. MULTI VITAMIN [Concomitant]
     Active Substance: VITAMINS
  5. BIOTIN [Concomitant]
     Active Substance: BIOTIN
  6. HYDROCHLOROTHIAZIDE. [Suspect]
     Active Substance: HYDROCHLOROTHIAZIDE
     Indication: HYPOTENSION
     Route: 048
     Dates: start: 20180730, end: 20180911
  7. CALCIUM [Concomitant]
     Active Substance: CALCIUM
  8. ALLERGY PILLS [Concomitant]
     Active Substance: UNSPECIFIED INGREDIENT
  9. (NAILS AND HAIR VITAMIN) [Concomitant]

REACTIONS (18)
  - Influenza like illness [None]
  - Headache [None]
  - Heart rate irregular [None]
  - Muscle fatigue [None]
  - Muscle spasms [None]
  - Somnolence [None]
  - Confusional state [None]
  - Drug dispensing error [None]
  - Malaise [None]
  - Rash [None]
  - Gait disturbance [None]
  - Pruritus [None]
  - Dizziness [None]
  - Fatigue [None]
  - Pyrexia [None]
  - Product use issue [None]
  - Muscular weakness [None]
  - Wrong drug administered [None]

NARRATIVE: CASE EVENT DATE: 20180730
